FAERS Safety Report 7954534-3 (Version None)
Quarter: 2011Q4

REPORT INFORMATION
  Report Type: 
  Country: None (occurrence: None)
  Receive Date: 20111202
  Receipt Date: 20111128
  Transmission Date: 20120403
  Serious: Yes (Other)
  Sender: FDA-Public Use
  Company Number: PHHY2011JP02672

PATIENT
  Age: 79 Year
  Sex: Female

DRUGS (2)
  1. ZOMETA [Suspect]
     Indication: METASTASES TO BONE
     Route: 041
  2. STEROIDS NOS [Concomitant]

REACTIONS (7)
  - PRIMARY SEQUESTRUM [None]
  - ORAL CAVITY FISTULA [None]
  - PAIN [None]
  - OSTEOLYSIS [None]
  - OSTEONECROSIS OF JAW [None]
  - EXPOSED BONE IN JAW [None]
  - PURULENT DISCHARGE [None]
